FAERS Safety Report 14764372 (Version 3)
Quarter: 2018Q3

REPORT INFORMATION
  Report Type: Spontaneous
  Country: FI (occurrence: FI)
  Receive Date: 20180416
  Receipt Date: 20180817
  Transmission Date: 20181010
  Serious: Yes (Death)
  Sender: FDA-Public Use
  Company Number: FI-NAPPMUNDI-GBR-2018-0054778

PATIENT
  Age: 66 Year
  Sex: Male

DRUGS (1)
  1. OXYNORM [Suspect]
     Active Substance: OXYCODONE HYDROCHLORIDE
     Indication: PAIN
     Dosage: 0.5 ML, UNK (10MG/ML STRENGTH)
     Route: 048
     Dates: start: 20171221, end: 20180326

REACTIONS (3)
  - Suspected counterfeit product [Unknown]
  - Product colour issue [Unknown]
  - Death [Fatal]

NARRATIVE: CASE EVENT DATE: 20180326
